FAERS Safety Report 4784437-7 (Version None)
Quarter: 2005Q3

REPORT INFORMATION
  Report Type: 
  Country: None (occurrence: None)
  Receive Date: 20050929
  Receipt Date: 20050929
  Transmission Date: 20060218
  Serious: Yes (Other)
  Sender: FDA-Public Use
  Company Number: None

PATIENT
  Age: 55 Year
  Sex: Female
  Weight: 55 kg

DRUGS (2)
  1. PROMETHAZINE [Suspect]
     Indication: NAUSEA
     Dosage: 25 MG  IV BOLUS   1 DOSE
     Route: 040
     Dates: start: 20041020, end: 20041020
  2. PROMETHAZINE [Suspect]
     Indication: VOMITING
     Dosage: 25 MG  IV BOLUS   1 DOSE
     Route: 040
     Dates: start: 20041020, end: 20041020

REACTIONS (2)
  - INFUSION SITE INFLAMMATION [None]
  - INFUSION SITE PAIN [None]
